FAERS Safety Report 6146267-3 (Version None)
Quarter: 2009Q2

REPORT INFORMATION
  Report Type: 
  Country: None (occurrence: None)
  Receive Date: 20090407
  Receipt Date: 20090325
  Transmission Date: 20091009
  Serious: Yes (Life-Threatening, Other)
  Sender: FDA-Public Use
  Company Number: GB-ELI_LILLY_AND_COMPANY-GB200903006338

PATIENT
  Age: 20 Year
  Sex: Male

DRUGS (4)
  1. OLANZAPINE [Suspect]
     Indication: AGGRESSION
     Dosage: 5 MG, UNK
     Route: 030
     Dates: start: 20090207, end: 20090207
  2. OLANZAPINE [Suspect]
     Dosage: 10 MG, UNK
     Route: 048
     Dates: start: 20090208, end: 20090208
  3. DIAZEPAM [Concomitant]
  4. LORAZEPAM [Concomitant]

REACTIONS (3)
  - DYSPHAGIA [None]
  - MUSCLE ATROPHY [None]
  - NEUROLEPTIC MALIGNANT SYNDROME [None]
